FAERS Safety Report 23183830 (Version 1)
Quarter: 2023Q4

REPORT INFORMATION
  Report Type: Report from Study
  Country: FR (occurrence: FR)
  Receive Date: 20231114
  Receipt Date: 20231114
  Transmission Date: 20240110
  Serious: Yes (Hospitalization, Other)
  Sender: FDA-Public Use
  Company Number: FR-ALXN-202311GLO000190FR

PATIENT
  Sex: Female
  Weight: 67 kg

DRUGS (11)
  1. SOLIRIS [Suspect]
     Active Substance: ECULIZUMAB
     Indication: Atypical haemolytic uraemic syndrome
     Dosage: 900 MILLIGRAM
     Route: 042
     Dates: start: 20131212, end: 20140109
  2. SOLIRIS [Suspect]
     Active Substance: ECULIZUMAB
     Dosage: 900 MILLIGRAM, SINGLE
     Route: 042
     Dates: start: 20140123, end: 20140123
  3. SOLIRIS [Suspect]
     Active Substance: ECULIZUMAB
     Dosage: 1200 MILLIGRAM
     Route: 042
     Dates: start: 20140206, end: 20140425
  4. PANTOPRAZOLE [Concomitant]
     Active Substance: PANTOPRAZOLE
     Indication: Ulcer
     Dosage: 40
     Route: 048
     Dates: start: 20190402
  5. Solupred [Concomitant]
     Indication: Immunosuppression
     Dosage: 5
     Route: 048
     Dates: start: 20190527
  6. TACROLIMUS [Concomitant]
     Active Substance: TACROLIMUS
     Indication: Immunosuppression
     Dosage: 8
     Route: 048
     Dates: start: 20191119
  7. CELLCEPT [Concomitant]
     Active Substance: MYCOPHENOLATE MOFETIL
     Indication: Immunosuppression
     Dosage: 1000
     Route: 048
     Dates: start: 20200326
  8. BACTRIM [Concomitant]
     Active Substance: SULFAMETHOXAZOLE\TRIMETHOPRIM
     Indication: Cystitis
     Dosage: 400/80
     Route: 048
     Dates: start: 20210226
  9. FUROSEMIDE [Concomitant]
     Active Substance: FUROSEMIDE
     Indication: Oedema
     Dosage: 40 MILLIGRAM, BID
     Route: 048
     Dates: start: 20210501
  10. CHOLECALCIFEROL ARROW [Concomitant]
     Indication: Vitamin D deficiency
     Dosage: 100 000 EVERY 3 MONTHS
     Route: 048
     Dates: start: 20210628
  11. RAMIPRIL [Concomitant]
     Active Substance: RAMIPRIL
     Indication: Proteinuria
     Dosage: 1.25 MILLIGRAM, QD
     Route: 048
     Dates: start: 20210628

REACTIONS (1)
  - Pyelonephritis [Recovered/Resolved]

NARRATIVE: CASE EVENT DATE: 20230423
